FAERS Safety Report 22257907 (Version 1)
Quarter: 2023Q2

REPORT INFORMATION
  Report Type: Other
  Country: KZ (occurrence: KZ)
  Receive Date: 20230427
  Receipt Date: 20230427
  Transmission Date: 20230721
  Serious: Yes (Other)
  Sender: FDA-Public Use
  Company Number: KZ-MACLEODS PHARMA EU LTD-MAC2023040960

PATIENT

DRUGS (4)
  1. PYRAZINAMIDE [Suspect]
     Active Substance: PYRAZINAMIDE
     Indication: Pulmonary tuberculosis
     Dosage: UNK
     Route: 065
  2. Levozin 500 [Concomitant]
     Indication: Product used for unknown indication
     Dosage: UNK (NOBEL ALMATY PHARMACEUTICAL FACTORY)
     Route: 065
  3. CYCLOSERINE [Concomitant]
     Active Substance: CYCLOSERINE
     Indication: Product used for unknown indication
     Dosage: UNK (ABDI IBRAHIM GLOBAL PHARM)
     Route: 065
  4. SIRTURO [Concomitant]
     Active Substance: BEDAQUILINE FUMARATE
     Indication: Product used for unknown indication
     Dosage: UNK (RECIPHARM PHARMACERVICES PVT.LTD, INDIA/ JANSSEN PHARMACEUTICALS N.V., BELGIUM)
     Route: 065

REACTIONS (1)
  - Hepatotoxicity [Recovering/Resolving]
